FAERS Safety Report 8305142-6 (Version None)
Quarter: 2012Q2

REPORT INFORMATION
  Report Type: 
  Country: None (occurrence: None)
  Receive Date: 20120423
  Receipt Date: 20120413
  Transmission Date: 20120825
  Serious: Yes (Other)
  Sender: FDA-Public Use
  Company Number: FR-ASTRAZENECA-2012SE24530

PATIENT
  Sex: Male

DRUGS (1)
  1. VANDETANIB [Suspect]
     Route: 048

REACTIONS (1)
  - CORNEAL DYSTROPHY [None]
